FAERS Safety Report 5195797-X (Version None)
Quarter: 2006Q4

REPORT INFORMATION
  Report Type: 
  Country: None (occurrence: None)
  Receive Date: 20061227
  Receipt Date: 20061227
  Transmission Date: 20070319
  Serious: Yes (Other)
  Sender: FDA-Public Use
  Company Number: None

PATIENT
  Age: 15 Year
  Sex: Male
  Weight: 70.7611 kg

DRUGS (1)
  1. BENZOYL PEROXIDE COMPOUNDING ACNE FREE SEVERE [Suspect]
     Indication: ACNE
     Dosage: USE 4 STEPS 2 X PER DAY
     Dates: start: 20061223, end: 20061223

REACTIONS (5)
  - BLISTER [None]
  - ERYTHEMA [None]
  - EYE SWELLING [None]
  - SKIN DISORDER [None]
  - SWELLING FACE [None]
